FAERS Safety Report 22031125 (Version 2)
Quarter: 2023Q2

REPORT INFORMATION
  Report Type: Spontaneous
  Country: JP (occurrence: JP)
  Receive Date: 20230223
  Receipt Date: 20230404
  Transmission Date: 20230721
  Serious: Yes (Hospitalization)
  Sender: FDA-Public Use
  Company Number: JP-002147023-NVSJ2023JP003578

PATIENT
  Age: 86 Year
  Sex: Female

DRUGS (1)
  1. ENTRESTO [Suspect]
     Active Substance: SACUBITRIL\VALSARTAN
     Indication: Cardiac failure
     Dosage: 200 MG
     Route: 048

REACTIONS (2)
  - Cardiac failure [Recovered/Resolved]
  - Contraindicated product administered [Unknown]
